FAERS Safety Report 7279271-2 (Version None)
Quarter: 2011Q1

REPORT INFORMATION
  Report Type: 
  Country: None (occurrence: None)
  Receive Date: 20110207
  Receipt Date: 20110131
  Transmission Date: 20110831
  Serious: Yes (Hospitalization, Other)
  Sender: FDA-Public Use
  Company Number: BR-PFIZER INC-2010157688

PATIENT
  Age: 38 Year
  Sex: Female
  Weight: 53 kg

DRUGS (3)
  1. TRIQUILAR [Concomitant]
     Indication: CONTRACEPTION
     Dosage: UNK
     Dates: start: 20100701
  2. CHAMPIX [Suspect]
     Dosage: 1 MG, 2X/DAY, EVERY 12 HOURS
     Route: 048
  3. CHAMPIX [Suspect]
     Indication: TOBACCO USER
     Dosage: UNK
     Route: 048
     Dates: start: 20101028

REACTIONS (10)
  - SOMNAMBULISM [None]
  - AGGRESSION [None]
  - DELIRIUM [None]
  - COORDINATION ABNORMAL [None]
  - CHILLS [None]
  - HYPERHIDROSIS [None]
  - HYPERTENSION [None]
  - NERVOUSNESS [None]
  - WITHDRAWAL SYNDROME [None]
  - SPEECH DISORDER [None]
